FAERS Safety Report 4494248-8 (Version None)
Quarter: 2004Q4

REPORT INFORMATION
  Report Type: 
  Country: None (occurrence: None)
  Receive Date: 20041105
  Receipt Date: 20010214
  Transmission Date: 20050328
  Serious: Yes (Death, Other)
  Sender: FDA-Public Use
  Company Number: PHFR2001GB00788

PATIENT
  Age: 20 Year
  Sex: Male

DRUGS (4)
  1. CLOZARIL [Suspect]
     Dosage: 250MG/DAY
     Route: 048
     Dates: start: 20010117
  2. CLOZARIL [Suspect]
     Dosage: 350MG/DAY
     Route: 048
  3. ZOPICLONE [Concomitant]
     Dosage: UNK, PRN
  4. DOXYCYCLINE [Concomitant]

REACTIONS (1)
  - CONVULSION [None]
